FAERS Safety Report 20714096 (Version 1)
Quarter: 2022Q2

REPORT INFORMATION
  Report Type: Spontaneous
  Country: SI (occurrence: SI)
  Receive Date: 20220415
  Receipt Date: 20220415
  Transmission Date: 20220720
  Serious: Yes (Other)
  Sender: FDA-Public Use
  Company Number: SI-002147023-NVSC2022SI070917

PATIENT
  Sex: Male

DRUGS (4)
  1. SILDENAFIL CITRATE [Suspect]
     Active Substance: SILDENAFIL CITRATE
     Dosage: OCCASIONALLY
     Route: 065
  2. GALANTAMINE HYDROBROMIDE [Suspect]
     Active Substance: GALANTAMINE HYDROBROMIDE
     Indication: Dementia Alzheimer^s type
     Dosage: 24 MG
     Route: 065
     Dates: start: 201712
  3. GALANTAMINE HYDROBROMIDE [Suspect]
     Active Substance: GALANTAMINE HYDROBROMIDE
     Dosage: 16 MG, QW
     Route: 065
  4. GALANTAMINE HYDROBROMIDE [Suspect]
     Active Substance: GALANTAMINE HYDROBROMIDE
     Dosage: 8 MG, Q2W (SUSTAINED RELEASE)
     Route: 065
     Dates: start: 201710

REACTIONS (15)
  - Dementia Alzheimer^s type [Unknown]
  - Cerebral atrophy [Unknown]
  - Cerebral ventricle dilatation [Unknown]
  - Hand fracture [Not Recovered/Not Resolved]
  - Disorientation [Unknown]
  - Memory impairment [Not Recovered/Not Resolved]
  - Cerebral calcification [Unknown]
  - Headache [Unknown]
  - Decreased interest [Unknown]
  - Anxiety [Unknown]
  - Blood creatinine abnormal [Unknown]
  - Glomerular filtration rate abnormal [Unknown]
  - Full blood count abnormal [Unknown]
  - Liver function test abnormal [Unknown]
  - Thyroxine free abnormal [Unknown]

NARRATIVE: CASE EVENT DATE: 20150101
